FAERS Safety Report 4607938-0 (Version None)
Quarter: 2005Q2

REPORT INFORMATION
  Report Type: 
  Country: None (occurrence: None)
  Receive Date: 20050303
  Receipt Date: 20041008
  Transmission Date: 20051028
  Serious: No
  Sender: FDA-Public Use
  Company Number: 209213

PATIENT
  Age: 62 Year
  Sex: Male
  Weight: 86 kg

DRUGS (7)
  1. XOLAIR [Suspect]
     Indication: ASTHMA
     Dosage: 150 MG, Q4W, SUBCUTANEOUS
     Route: 058
     Dates: start: 20031024
  2. ADVAIR (SALMETEROL XINAFOATE, FLUTICASONE PROPIONATE) [Concomitant]
  3. ACIPHEX [Concomitant]
  4. SINGULAIR [Concomitant]
  5. RHINOCORT AQUA (BUDESONIDE) [Concomitant]
  6. CARDIZEM [Concomitant]
  7. PROSCAR [Concomitant]

REACTIONS (1)
  - HYPERSENSITIVITY [None]
